FAERS Safety Report 7997113-4 (Version None)
Quarter: 2011Q4

REPORT INFORMATION
  Report Type: 
  Country: None (occurrence: None)
  Receive Date: 20111221
  Receipt Date: 20111217
  Transmission Date: 20120403
  Serious: Yes (Death, Other)
  Sender: FDA-Public Use
  Company Number: IR-SANOFI-AVENTIS-2011SA081650

PATIENT
  Age: 38 Year
  Sex: Female

DRUGS (3)
  1. FLUOROURACIL [Concomitant]
     Dosage: 48 HOURS CONTINUOUS INFUSION.
     Route: 041
     Dates: start: 20110912, end: 20111201
  2. LEUCOVORIN CALCIUM [Concomitant]
     Dosage: 2 HOURS INFUSION.
     Route: 041
     Dates: start: 20110912, end: 20111201
  3. ELOXATIN [Suspect]
     Dosage: 2 HOURS IV INFUSION.
     Route: 041
     Dates: start: 20110911, end: 20111201

REACTIONS (3)
  - HYPOTENSION [None]
  - CARDIOGENIC SHOCK [None]
  - CHEST PAIN [None]
